FAERS Safety Report 11454597 (Version 1)
Quarter: 2015Q3

REPORT INFORMATION
  Report Type: Spontaneous
  Country: US (occurrence: US)
  Receive Date: 20150831
  Receipt Date: 20150831
  Transmission Date: 20151125
  Serious: Yes (Other)
  Sender: FDA-Public Use
  Company Number: US-ELI_LILLY_AND_COMPANY-US201004005317

PATIENT
  Sex: Female

DRUGS (3)
  1. PRISTIQ EXTENDED RELEASE [Concomitant]
     Active Substance: DESVENLAFAXINE SUCCINATE
     Indication: DEPRESSION
     Dosage: 50 MG, DAILY (1/D)
     Dates: start: 200910, end: 20100325
  2. CYMBALTA [Suspect]
     Active Substance: DULOXETINE HYDROCHLORIDE
  3. REMERON [Concomitant]
     Active Substance: MIRTAZAPINE

REACTIONS (5)
  - Suicidal behaviour [Unknown]
  - Agitation [Recovering/Resolving]
  - Irritability [Unknown]
  - Anger [Unknown]
  - Hand fracture [Unknown]

NARRATIVE: CASE EVENT DATE: 2009
